FAERS Safety Report 9284018 (Version 1)
Quarter: 2013Q2

REPORT INFORMATION
  Report Type: Spontaneous
  Country: US (occurrence: US)
  Receive Date: 20130510
  Receipt Date: 20130510
  Transmission Date: 20140414
  Serious: No
  Sender: FDA-Public Use
  Company Number: US-ASTRAZENECA-2013SE29302

PATIENT
  Age: 44 Year
  Sex: Female
  Weight: 90.7 kg

DRUGS (7)
  1. NEXIUM [Suspect]
     Indication: GASTROOESOPHAGEAL REFLUX DISEASE
     Route: 048
     Dates: start: 20130422
  2. PRILOSEC OTC [Suspect]
     Indication: GASTROOESOPHAGEAL REFLUX DISEASE
     Route: 048
  3. TRAMADOL [Concomitant]
     Indication: PAIN
  4. GABAPENTIN [Concomitant]
     Indication: FIBROMYALGIA
  5. GENERIC FOR REQUIP [Concomitant]
     Indication: RESTLESS LEGS SYNDROME
     Dates: start: 201304
  6. WELLBUTRIN [Concomitant]
     Indication: DEPRESSION
  7. WELLBUTRIN [Concomitant]
     Indication: ANXIETY

REACTIONS (1)
  - Gastrooesophageal reflux disease [Unknown]
